FAERS Safety Report 8360108-5 (Version None)
Quarter: 2012Q2

REPORT INFORMATION
  Report Type: 
  Country: None (occurrence: None)
  Receive Date: 20120515
  Receipt Date: 20110613
  Transmission Date: 20120825
  Serious: No
  Sender: FDA-Public Use
  Company Number: US-ALEXION-A201100863

PATIENT
  Sex: Female

DRUGS (3)
  1. SOLIRIS [Suspect]
     Indication: PAROXYSMAL NOCTURNAL HAEMOGLOBINURIA
     Route: 042
  2. PREDNISONE [Concomitant]
     Dosage: UNK
     Dates: end: 20110101
  3. DANAZOL [Concomitant]
     Dosage: UNK

REACTIONS (3)
  - JOINT SWELLING [None]
  - INTERNATIONAL NORMALISED RATIO INCREASED [None]
  - ARTHRALGIA [None]
